FAERS Safety Report 24980686 (Version 2)
Quarter: 2025Q1

REPORT INFORMATION
  Report Type: Spontaneous
  Country: BR (occurrence: BR)
  Receive Date: 20250218
  Receipt Date: 20250312
  Transmission Date: 20250408
  Serious: Yes (Death, Life-Threatening, Hospitalization, Other)
  Sender: BAYER HEALTHCARE PHARMACEUTICALS INC.
  Company Number: BR-BAYER-2025A022108

PATIENT
  Age: 57 Year
  Sex: Female
  Weight: 73 kg

DRUGS (2)
  1. GADOBUTROL [Suspect]
     Active Substance: GADOBUTROL
     Indication: Magnetic resonance imaging abdominal
     Route: 042
     Dates: start: 20250212, end: 20250212
  2. GADOBUTROL [Suspect]
     Active Substance: GADOBUTROL
     Indication: Abdominal pain

REACTIONS (7)
  - Anaphylactic reaction [Fatal]
  - Cardiac arrest [Fatal]
  - Laryngeal oedema [Fatal]
  - Dyspnoea [Fatal]
  - Nausea [Fatal]
  - Loss of consciousness [Fatal]
  - Pulse absent [Fatal]

NARRATIVE: CASE EVENT DATE: 20250212
